FAERS Safety Report 14385753 (Version 1)
Quarter: 2018Q1

REPORT INFORMATION
  Report Type: Spontaneous
  Country: US (occurrence: US)
  Receive Date: 20180115
  Receipt Date: 20180115
  Transmission Date: 20180509
  Serious: No
  Sender: FDA-Public Use
  Company Number: US-SA-2017SA042360

PATIENT
  Age: 66 Year
  Sex: Female

DRUGS (2)
  1. TAXOTERE [Suspect]
     Active Substance: DOCETAXEL
     Indication: BREAST CANCER
     Route: 065
     Dates: start: 200906, end: 200906
  2. TAXOTERE [Suspect]
     Active Substance: DOCETAXEL
     Indication: BREAST CANCER
     Route: 065
     Dates: start: 200911, end: 200911

REACTIONS (5)
  - Alopecia [Unknown]
  - Hair growth abnormal [Unknown]
  - Gait disturbance [Unknown]
  - Neuropathy peripheral [Recovering/Resolving]
  - Amnesia [Not Recovered/Not Resolved]
